FAERS Safety Report 7096034-1 (Version None)
Quarter: 2010Q4

REPORT INFORMATION
  Report Type: 
  Country: None (occurrence: None)
  Receive Date: 20101111
  Receipt Date: 20101029
  Transmission Date: 20110411
  Serious: Yes (Hospitalization)
  Sender: FDA-Public Use
  Company Number: PHHY2010DE74527

PATIENT
  Age: 36 Year
  Sex: Male

DRUGS (2)
  1. GLEEVEC [Suspect]
     Dosage: 400 MG DAILY
     Route: 048
     Dates: end: 20101026
  2. GLEEVEC [Suspect]
     Dosage: 400 MG, QID
     Route: 048
     Dates: start: 20101026, end: 20101029

REACTIONS (3)
  - ACCIDENTAL OVERDOSE [None]
  - FATIGUE [None]
  - ORAL CANDIDIASIS [None]
